FAERS Safety Report 9161607 (Version 2)
Quarter: 2013Q2

REPORT INFORMATION
  Report Type: Spontaneous
  Country: ES (occurrence: ES)
  Receive Date: 20130313
  Receipt Date: 20130402
  Transmission Date: 20140414
  Serious: Yes (Hospitalization)
  Sender: FDA-Public Use
  Company Number: ES-B.I. PHARMACEUTICALS,INC./RIDGEFIELD-2013-ES-00099ES

PATIENT
  Age: 91 Year
  Sex: Male
  Weight: 70 kg

DRUGS (5)
  1. PRADAXA [Suspect]
     Indication: ARRHYTHMIA
     Dosage: 220 MG
     Dates: start: 20130118, end: 20130301
  2. PRADAXA [Suspect]
     Indication: ATRIAL FIBRILLATION
  3. MASDIL RETARD [Concomitant]
  4. CARDURAN [Concomitant]
  5. SPIRIVA [Concomitant]

REACTIONS (1)
  - Haematemesis [Recovered/Resolved]
